FAERS Safety Report 26060923 (Version 2)
Quarter: 2025Q4

REPORT INFORMATION
  Report Type: Spontaneous
  Country: CN (occurrence: CN)
  Receive Date: 20251118
  Receipt Date: 20251124
  Transmission Date: 20260118
  Serious: Yes (Death, Life-Threatening, Other)
  Sender: ABBVIE
  Company Number: CN-PFIZER INC-PV202500134732

PATIENT
  Sex: Female

DRUGS (1)
  1. AVIBACTAM\AZTREONAM [Suspect]
     Active Substance: AVIBACTAM\AZTREONAM
     Indication: Product used for unknown indication
     Route: 065

REACTIONS (2)
  - Shock [Fatal]
  - Coma [Unknown]
